FAERS Safety Report 7471334-1 (Version None)
Quarter: 2011Q2

REPORT INFORMATION
  Report Type: 
  Country: None (occurrence: None)
  Receive Date: 20110510
  Receipt Date: 20110505
  Transmission Date: 20111010
  Serious: Yes (Hospitalization, Other)
  Sender: FDA-Public Use
  Company Number: DE-MERCK-1103DEU00066

PATIENT
  Age: 64 Year
  Sex: Male
  Weight: 69 kg

DRUGS (2)
  1. RAMIPRIL [Concomitant]
     Indication: HYPERTENSION
     Route: 048
     Dates: start: 20051026
  2. ZOCOR [Suspect]
     Indication: HYPERLIPIDAEMIA
     Route: 048
     Dates: start: 20080526

REACTIONS (5)
  - DIZZINESS [None]
  - CERVICOBRACHIAL SYNDROME [None]
  - TRANSIENT ISCHAEMIC ATTACK [None]
  - FALL [None]
  - CEREBROVASCULAR ACCIDENT [None]
